FAERS Safety Report 8380843-2 (Version None)
Quarter: 2012Q2

REPORT INFORMATION
  Report Type: 
  Country: None (occurrence: None)
  Receive Date: 20120523
  Receipt Date: 20120518
  Transmission Date: 20120825
  Serious: Yes (Other)
  Sender: FDA-Public Use
  Company Number: JP-SANOFI-AVENTIS-2011SA047136

PATIENT
  Age: 70 Year
  Sex: Male

DRUGS (5)
  1. FLUOROURACIL [Concomitant]
     Dosage: TOTAL 3 CYCLES
     Route: 040
  2. CALCIUM LEVOFOLINATE [Concomitant]
     Indication: COLON CANCER
     Route: 041
  3. FLUOROURACIL [Concomitant]
     Indication: COLON CANCER
     Dosage: TOTAL 3 CYCLES
     Route: 041
  4. OXALIPLATIN [Suspect]
     Indication: COLON CANCER
     Dosage: TOTAL 3 CYCLES
     Route: 041
  5. AVASTIN [Concomitant]
     Indication: COLON CANCER
     Route: 041

REACTIONS (3)
  - HAEMOPTYSIS [None]
  - ACUTE RESPIRATORY DISTRESS SYNDROME [None]
  - NEUTROPHIL COUNT DECREASED [None]
